FAERS Safety Report 8215832-1 (Version None)
Quarter: 2012Q1

REPORT INFORMATION
  Report Type: 
  Country: None (occurrence: None)
  Receive Date: 20120316
  Receipt Date: 20120305
  Transmission Date: 20120608
  Serious: Yes (Other)
  Sender: FDA-Public Use
  Company Number: US-JNJFOC-20120208855

PATIENT
  Sex: Male
  Weight: 133.81 kg

DRUGS (4)
  1. CLOBEX [Concomitant]
     Indication: PSORIASIS
     Route: 061
  2. STELARA [Suspect]
     Indication: PSORIASIS
     Route: 058
     Dates: start: 20120207
  3. STELARA [Suspect]
     Route: 058
     Dates: start: 20091110
  4. CARBIDOPA [Concomitant]
     Indication: PARKINSON'S DISEASE

REACTIONS (5)
  - ASPARTATE AMINOTRANSFERASE INCREASED [None]
  - WHITE BLOOD CELL COUNT DECREASED [None]
  - ALANINE AMINOTRANSFERASE INCREASED [None]
  - PLATELET COUNT DECREASED [None]
  - BLOOD UREA INCREASED [None]
